FAERS Safety Report 7782281-X (Version None)
Quarter: 2011Q3

REPORT INFORMATION
  Report Type: 
  Country: None (occurrence: None)
  Receive Date: 20110927
  Receipt Date: 20110922
  Transmission Date: 20111222
  Serious: Yes (Death, Hospitalization)
  Sender: FDA-Public Use
  Company Number: FR-MERCK-1107FRA00038

PATIENT
  Age: 48 Year
  Sex: Male
  Weight: 54 kg

DRUGS (3)
  1. LAMIVUDINE AND ZIDOVUDINE [Concomitant]
     Indication: HIV INFECTION
     Route: 048
  2. ISENTRESS [Suspect]
     Route: 048
     Dates: start: 20100417
  3. RISPERIDONE [Concomitant]
     Route: 065

REACTIONS (2)
  - SEPTIC SHOCK [None]
  - HISTIOCYTOSIS HAEMATOPHAGIC [None]
